FAERS Safety Report 8421611-2 (Version None)
Quarter: 2012Q2

REPORT INFORMATION
  Report Type: 
  Country: None (occurrence: None)
  Receive Date: 20120608
  Receipt Date: 20120531
  Transmission Date: 20120825
  Serious: Yes (Hospitalization, Other)
  Sender: FDA-Public Use
  Company Number: US-PFIZER INC-2012132977

PATIENT
  Sex: Male
  Weight: 77.1 kg

DRUGS (23)
  1. LISINOPRIL [Concomitant]
     Indication: HYPERTENSION
     Dosage: UNK
     Dates: start: 20111001
  2. MULTIVITAMIN [Concomitant]
     Indication: MEDICAL DIET
     Dosage: UNK
     Dates: start: 20110401
  3. ATIVAN [Concomitant]
     Indication: NAUSEA
     Dosage: UNK
     Dates: start: 20120417
  4. FLAXSEED OIL [Concomitant]
     Indication: MEDICAL DIET
     Dosage: UNK
     Dates: start: 20120101
  5. BENADRYL [Concomitant]
     Indication: PROPHYLAXIS
     Dosage: UNK, 2X/WEEK
     Dates: start: 20120501
  6. SEPTANEST [Concomitant]
     Dosage: UNK
     Dates: start: 20111001
  7. IRINOTECAN HCL [Suspect]
     Indication: COLORECTAL CANCER METASTATIC
     Dosage: 180 MG/M2, 1 EVERY 14 DAYS
     Route: 042
     Dates: start: 20120501, end: 20120501
  8. FLUOROURACIL [Suspect]
     Dosage: 2400 MG/M2, DAY 1 AND 2 EVERY 14 DAYS
     Route: 042
     Dates: start: 20120501, end: 20120503
  9. OMEPRAZOLE [Concomitant]
     Indication: GASTROOESOPHAGEAL REFLUX DISEASE
     Dosage: UNK
     Dates: start: 20110401
  10. DOXYCYCLINE [Concomitant]
     Indication: PROPHYLAXIS
     Dosage: UNK
     Dates: start: 20120101
  11. LOMOTIL [Concomitant]
     Indication: DIARRHOEA
     Dosage: UNK
     Dates: start: 20120417
  12. FLUOROURACIL [Suspect]
     Indication: COLORECTAL CANCER METASTATIC
     Dosage: 400 MG/M2, BOLUS
     Route: 040
     Dates: start: 20120501, end: 20120503
  13. LEUCOVORIN CALCIUM [Suspect]
     Indication: COLORECTAL CANCER METASTATIC
     Dosage: 400 MG/M2, DAY 1 EVERY 14 DAYS
     Route: 042
     Dates: start: 20120501, end: 20120501
  14. WARFARIN [Concomitant]
     Indication: ATRIAL FIBRILLATION
     Dosage: UNK
     Dates: start: 19930101
  15. DECADRON [Concomitant]
     Dosage: UNK
     Dates: start: 20120501
  16. LUMIGAN [Concomitant]
     Indication: GLAUCOMA
     Dosage: UNK
     Dates: start: 20111001
  17. ATROPINE [Concomitant]
     Indication: PROPHYLAXIS
     Dosage: UNK, EVERY TWO WEEKS
     Route: 042
     Dates: start: 20120501
  18. BLINDED THERAPY [Suspect]
     Indication: COLORECTAL CANCER METASTATIC
     Dosage: DAY 1 EVERY 14 DAYS
     Route: 042
     Dates: start: 20120501, end: 20120501
  19. AZOPT [Concomitant]
     Indication: GLAUCOMA
     Dosage: UNK
     Dates: start: 20111001
  20. MECLIZINE [Concomitant]
     Indication: NAUSEA
     Dosage: UNK
     Dates: start: 20110401
  21. COSOPT [Concomitant]
     Dosage: UNK
     Dates: start: 20120421
  22. EMLA [Concomitant]
     Indication: PAIN
     Dosage: UNK
     Dates: start: 20120419
  23. ALOXI [Concomitant]
     Indication: PROPHYLAXIS
     Dosage: UNK, EVERY 2 WEEKS
     Dates: start: 20120501

REACTIONS (6)
  - SYNCOPE [None]
  - HAND FRACTURE [None]
  - FALL [None]
  - NEUTROPHIL COUNT DECREASED [None]
  - RHABDOMYOLYSIS [None]
  - WHITE BLOOD CELL COUNT DECREASED [None]
